FAERS Safety Report 21527904 (Version 3)
Quarter: 2023Q4

REPORT INFORMATION
  Report Type: Report from Study
  Country: JP (occurrence: JP)
  Receive Date: 20221031
  Receipt Date: 20231110
  Transmission Date: 20240110
  Serious: Yes (Other)
  Sender: FDA-Public Use
  Company Number: JP-ASTELLAS-2022JP015713

PATIENT
  Age: 73 Year
  Sex: Male
  Weight: 63.9 kg

DRUGS (4)
  1. ENFORTUMAB VEDOTIN [Suspect]
     Active Substance: ENFORTUMAB VEDOTIN
     Indication: Transitional cell carcinoma
     Dosage: 1.25 MG/KG, ONCE A WEEK, 3-WEEKS TREATMENT AND 1-WEEK REST
     Route: 041
     Dates: start: 20220222, end: 20220426
  2. ENFORTUMAB VEDOTIN [Suspect]
     Active Substance: ENFORTUMAB VEDOTIN
     Dosage: 1.25 MG/KG, ONCE A WEEK, 3-WEEKS TREATMENT AND 1-WEEK REST
     Route: 041
     Dates: start: 20220510, end: 20220510
  3. ENFORTUMAB VEDOTIN [Suspect]
     Active Substance: ENFORTUMAB VEDOTIN
     Dosage: 1.25 MG/KG, ONCE A WEEK, 3-WEEKS TREATMENT AND 1-WEEK REST
     Route: 041
     Dates: start: 20220531, end: 20220614
  4. ENFORTUMAB VEDOTIN [Suspect]
     Active Substance: ENFORTUMAB VEDOTIN
     Dosage: 1.25 MG/KG, ONCE A WEEK, 3-WEEKS TREATMENT AND 1-WEEK REST
     Route: 041
     Dates: start: 20220705, end: 20220816

REACTIONS (3)
  - Urinary bladder sarcoma [Not Recovered/Not Resolved]
  - Taste disorder [Recovered/Resolved]
  - Inappropriate schedule of product administration [Unknown]

NARRATIVE: CASE EVENT DATE: 20220301
